FAERS Safety Report 9691958 (Version 1)
Quarter: 2013Q4

REPORT INFORMATION
  Report Type: Spontaneous
  Country: CA (occurrence: CA)
  Receive Date: 20131118
  Receipt Date: 20131118
  Transmission Date: 20140711
  Serious: Yes (Death, Hospitalization)
  Sender: FDA-Public Use
  Company Number: CA-AMGEN-CANSP2013080361

PATIENT
  Age: 80 Year
  Sex: Male

DRUGS (1)
  1. SENSIPAR [Suspect]
     Indication: RENAL FAILURE CHRONIC
     Dosage: 90 MG, UNK
     Route: 065
     Dates: start: 20061102, end: 201309

REACTIONS (2)
  - Death [Fatal]
  - Hospitalisation [Unknown]
